FAERS Safety Report 24192436 (Version 1)
Quarter: 2024Q3

REPORT INFORMATION
  Report Type: Spontaneous
  Country: US (occurrence: US)
  Receive Date: 20240809
  Receipt Date: 20240809
  Transmission Date: 20241017
  Serious: Yes (Hospitalization, Disabling)
  Sender: ALVOGEN
  Company Number: US-ALVOGEN-2024095259

PATIENT
  Sex: Female

DRUGS (1)
  1. OXYCODONE HYDROCHLORIDE [Suspect]
     Active Substance: OXYCODONE HYDROCHLORIDE
     Indication: Pain management
     Dosage: FROM A YEAR AND HALF
     Route: 048

REACTIONS (7)
  - Disability [Unknown]
  - Blood calcium decreased [Recovered/Resolved]
  - Blood potassium decreased [Recovered/Resolved]
  - Abdominal pain upper [Recovered/Resolved]
  - Feeling abnormal [Recovered/Resolved]
  - Weight decreased [Recovered/Resolved]
  - Headache [Not Recovered/Not Resolved]
